FAERS Safety Report 9399788 (Version 3)
Quarter: 2013Q4

REPORT INFORMATION
  Report Type: Report from Study
  Country: BR (occurrence: BR)
  Receive Date: 20130715
  Receipt Date: 20131021
  Transmission Date: 20140711
  Serious: Yes (Other)
  Sender: FDA-Public Use
  Company Number: PHHY2013BR074359

PATIENT
  Sex: Female
  Weight: 48 kg

DRUGS (6)
  1. ACLASTA [Suspect]
     Indication: OSTEOPOROSIS
     Dosage: 5 MG, UNK
     Route: 042
     Dates: start: 2013
  2. TRAMAL [Concomitant]
     Indication: ARTHRITIS
     Dosage: 2 DF, DAILY
     Route: 048
  3. TRAMAL [Concomitant]
     Indication: OSTEOARTHRITIS
  4. COLESTYRAMINE W/DICLOFENAC SODIUM [Concomitant]
     Indication: ARTHRITIS
     Dosage: 4 DF, DAILY
     Route: 048
  5. COLESTYRAMINE W/DICLOFENAC SODIUM [Concomitant]
     Indication: OSTEOARTHRITIS
  6. DICLOFENAC [Concomitant]
     Dosage: UNK UKN, UNK

REACTIONS (11)
  - Spinal deformity [Unknown]
  - Gait disturbance [Not Recovered/Not Resolved]
  - Cholelithiasis [Not Recovered/Not Resolved]
  - Increased appetite [Not Recovered/Not Resolved]
  - Arthralgia [Not Recovered/Not Resolved]
  - Spinal pain [Not Recovered/Not Resolved]
  - Anaemia [Not Recovered/Not Resolved]
  - Pain [Unknown]
  - Pyrexia [Unknown]
  - Osteoporosis [Not Recovered/Not Resolved]
  - Disease progression [Not Recovered/Not Resolved]
